FAERS Safety Report 7076747-8 (Version None)
Quarter: 2010Q4

REPORT INFORMATION
  Report Type: 
  Country: None (occurrence: None)
  Receive Date: 20101101
  Receipt Date: 20101019
  Transmission Date: 20110411
  Serious: Yes (Life-Threatening, Hospitalization)
  Sender: FDA-Public Use
  Company Number: FR-EISAI INC.-E3810-04166-SPO-FR

PATIENT
  Sex: Female
  Weight: 90 kg

DRUGS (4)
  1. PARIET (RABEPRAZOLE) [Suspect]
     Dosage: UNKNOWN
     Route: 048
  2. DURAGESIC-100 [Suspect]
     Indication: PAIN
     Route: 062
     Dates: start: 20100901
  3. DURAGESIC-100 [Suspect]
     Route: 062
     Dates: start: 20100901, end: 20100901
  4. PREGABALIN [Concomitant]

REACTIONS (4)
  - BRONCHOSPASM [None]
  - CARDIAC ARREST [None]
  - CYANOSIS [None]
  - DYSPNOEA [None]
